FAERS Safety Report 24126796 (Version 1)
Quarter: 2024Q3

REPORT INFORMATION
  Report Type: Spontaneous
  Country: US (occurrence: None)
  Receive Date: 20240722
  Receipt Date: 20240722
  Transmission Date: 20241017
  Serious: Yes (Other)
  Sender: Public
  Company Number: None

PATIENT
  Age: 74 Year
  Sex: Female

DRUGS (1)
  1. XOLAIR [Suspect]
     Active Substance: OMALIZUMAB
     Indication: Asthma
     Dosage: OTHER FREQUENCY : Q 5 WKS;?
     Route: 058
     Dates: start: 20240306

REACTIONS (4)
  - Fall [None]
  - Atrial fibrillation [None]
  - Humerus fracture [None]
  - Contusion [None]

NARRATIVE: CASE EVENT DATE: 20240701
